FAERS Safety Report 9271275 (Version 4)
Quarter: 2013Q2

REPORT INFORMATION
  Report Type: Spontaneous
  Country: JP (occurrence: JP)
  Receive Date: 20130506
  Receipt Date: 20130620
  Transmission Date: 20140414
  Serious: Yes (Other)
  Sender: FDA-Public Use
  Company Number: JP-ELI_LILLY_AND_COMPANY-JP201304007021

PATIENT
  Age: 32 Year
  Sex: Female
  Weight: 46 kg

DRUGS (2)
  1. ZYPREXA [Suspect]
     Indication: ACUTE PSYCHOSIS
     Dosage: 20 MG, QD
     Route: 048
     Dates: start: 20130419, end: 20130423
  2. BENZALIN [Concomitant]
     Dosage: 5 MG, QD
     Route: 048
     Dates: start: 20130419

REACTIONS (5)
  - Hepatic enzyme increased [Recovered/Resolved]
  - White blood cell count increased [Recovered/Resolved]
  - Fall [Unknown]
  - Presyncope [Unknown]
  - Off label use [Unknown]
